FAERS Safety Report 7321986-1 (Version None)
Quarter: 2011Q1

REPORT INFORMATION
  Report Type: 
  Country: None (occurrence: None)
  Receive Date: 20110228
  Receipt Date: 20110217
  Transmission Date: 20110831
  Serious: Yes (Other)
  Sender: FDA-Public Use
  Company Number: AU-BAXTER-2011BH004472

PATIENT
  Age: 60 Year
  Sex: Male

DRUGS (11)
  1. PREDNISOLONE [Suspect]
     Indication: WALDENSTROM'S MACROGLOBULINAEMIA
     Route: 065
  2. FLUDARA [Suspect]
     Route: 065
  3. VINCRISTINE SULFATE [Suspect]
     Indication: WALDENSTROM'S MACROGLOBULINAEMIA
     Route: 065
  4. RITUXIMAB [Suspect]
     Route: 065
  5. CYCLOPHOSPHAMIDE [Suspect]
     Route: 065
  6. RITUXIMAB [Suspect]
     Indication: WALDENSTROM'S MACROGLOBULINAEMIA
     Route: 065
  7. CYCLOPHOSPHAMIDE [Suspect]
     Indication: WALDENSTROM'S MACROGLOBULINAEMIA
     Route: 065
  8. CYCLOPHOSPHAMIDE [Suspect]
     Route: 065
  9. CYCLOPHOSPHAMIDE [Suspect]
     Route: 065
  10. FLUDARA [Suspect]
     Indication: WALDENSTROM'S MACROGLOBULINAEMIA
     Route: 065
  11. FLUDARA [Suspect]
     Route: 065

REACTIONS (1)
  - MYELODYSPLASTIC SYNDROME [None]
